FAERS Safety Report 8807961 (Version 6)
Quarter: 2013Q4

REPORT INFORMATION
  Report Type: Report from Study
  Country: US (occurrence: US)
  Receive Date: 20120925
  Receipt Date: 20131010
  Transmission Date: 20140711
  Serious: Yes (Hospitalization)
  Sender: FDA-Public Use
  Company Number: US-PFIZER INC-2012187324

PATIENT
  Sex: Male

DRUGS (11)
  1. SUNITINIB MALATE [Suspect]
     Indication: PROSTATE CANCER METASTATIC
     Dosage: 37.5 MG, 1X/DAY
     Route: 048
     Dates: start: 20120328, end: 20120403
  2. DASATINIB [Suspect]
     Indication: PROSTATE CANCER METASTATIC
     Dosage: 100 MG, DAILY
     Route: 048
     Dates: start: 20120620, end: 20130204
  3. ABIRATERONE ACETATE [Suspect]
     Indication: PROSTATE CANCER METASTATIC
     Dosage: 1000 MG, DAILY
     Route: 048
     Dates: start: 20111108, end: 20130204
  4. PREDNISONE [Suspect]
     Indication: PROSTATE CANCER METASTATIC
     Dosage: UNK
     Dates: start: 20111108, end: 20130204
  5. ALLOPURINOL [Concomitant]
     Dosage: 300 MG, UNK
     Route: 048
  6. CALCIUM [Concomitant]
     Dosage: 10 MG, 1X/DAY
     Route: 048
  7. CRESTOR [Concomitant]
     Dosage: 10 MG, 1X/DAY
     Route: 048
  8. LUPRON [Concomitant]
     Dosage: 30 MG, EVERY 3 MONTHS
     Route: 030
  9. INDOMETHACIN [Concomitant]
     Dosage: 50 MG, DAILY PRN
     Route: 048
  10. POTASSIUM [Concomitant]
     Dosage: 20 MEQ, 1X/DAY
     Route: 048
  11. HYDROCHLOROTHIAZIDE WITH TRIAMTERENE [Concomitant]
     Dosage: 50 MG/75 MG, DAILY
     Route: 048

REACTIONS (1)
  - Gastritis [Recovered/Resolved]
